FAERS Safety Report 11639388 (Version 3)
Quarter: 2017Q3

REPORT INFORMATION
  Report Type: Spontaneous
  Country: JP (occurrence: JP)
  Receive Date: 20151019
  Receipt Date: 20170922
  Transmission Date: 20171127
  Serious: Yes (Life-Threatening, Other)
  Sender: FDA-Public Use
  Company Number: JP-ACCORD-034605

PATIENT
  Age: 71 Year
  Sex: Male
  Weight: 64 kg

DRUGS (2)
  1. GEMCITABINE/GEMCITABINE HYDROCHLORIDE [Suspect]
     Active Substance: GEMCITABINE\GEMCITABINE HYDROCHLORIDE
     Indication: PANCREATIC CARCINOMA
     Dosage: THREE COURSES OF GEMCITABINE AND ERLOTINIB COMBINATION THERAPY
     Dates: start: 20121024
  2. ERLOTINIB/ERLOTINIB HYDROCHLORIDE [Suspect]
     Active Substance: ERLOTINIB HYDROCHLORIDE
     Indication: PANCREATIC CARCINOMA
     Dosage: THREE COURSES OF GEMCITABINE AND ERLOTINIB COMBINATION THERAPY
     Dates: start: 20121024

REACTIONS (2)
  - Therapy non-responder [Unknown]
  - Carbohydrate antigen 19-9 increased [Unknown]
